FAERS Safety Report 9691854 (Version 2)
Quarter: 2013Q4

REPORT INFORMATION
  Report Type: Spontaneous
  Country: US (occurrence: US)
  Receive Date: 20131117
  Receipt Date: 20131212
  Transmission Date: 20140711
  Serious: No
  Sender: FDA-Public Use
  Company Number: US-009507513-1311USA005264

PATIENT
  Age: 23 Year
  Sex: Female
  Weight: 64.4 kg

DRUGS (1)
  1. NEXPLANON [Suspect]
     Indication: CONTRACEPTION
     Dosage: 1 DF, UNK; 1 ROD
     Route: 059
     Dates: start: 20131107, end: 20131111

REACTIONS (2)
  - Device deployment issue [Recovered/Resolved]
  - Pain in extremity [Recovered/Resolved]
